FAERS Safety Report 7627764-8 (Version None)
Quarter: 2011Q3

REPORT INFORMATION
  Report Type: 
  Country: None (occurrence: None)
  Receive Date: 20110721
  Receipt Date: 20110629
  Transmission Date: 20111222
  Serious: Yes (Other)
  Sender: FDA-Public Use
  Company Number: US-PFIZER INC-2011128625

PATIENT
  Sex: Male

DRUGS (1)
  1. LOPID [Suspect]
     Indication: BLOOD TRIGLYCERIDES INCREASED
     Dosage: 600 MG, 2X/DAY
     Dates: start: 20040401, end: 20110101

REACTIONS (21)
  - COCCYDYNIA [None]
  - PALPITATIONS [None]
  - BURNING SENSATION [None]
  - GRUNTING [None]
  - MENTAL IMPAIRMENT [None]
  - PHOTOPHOBIA [None]
  - HYPOKINESIA [None]
  - SOMNOLENCE [None]
  - FALL [None]
  - DYSPHEMIA [None]
  - MUSCULOSKELETAL PAIN [None]
  - HYPERACUSIS [None]
  - MALAISE [None]
  - EYE DISORDER [None]
  - MUSCULAR WEAKNESS [None]
  - BLOOD GLUCOSE INCREASED [None]
  - TARDIVE DYSKINESIA [None]
  - LACK OF SPONTANEOUS SPEECH [None]
  - HYPOPNOEA [None]
  - FEELING COLD [None]
  - INSOMNIA [None]
